FAERS Safety Report 5737930-4 (Version None)
Quarter: 2008Q2

REPORT INFORMATION
  Report Type: 
  Country: None (occurrence: None)
  Receive Date: 20080509
  Receipt Date: 20080424
  Transmission Date: 20081010
  Serious: Yes (Other)
  Sender: FDA-Public Use
  Company Number: 2008S1004156

PATIENT
  Age: 40 Year
  Sex: Male

DRUGS (8)
  1. WARFARIN SODIUM [Suspect]
     Indication: DRUG USE FOR UNKNOWN INDICATION
     Dosage: 12 MG; ORAL;DAILY
     Route: 048
     Dates: start: 20070101
  2. LAMICTAL [Suspect]
     Indication: EPILEPSY
     Dosage: 200 MG;ORAL;TWICE A DAY
     Route: 048
     Dates: start: 20000101
  3. ALFUZOSIN (ALFUZOSIN) [Concomitant]
  4. CLOBAZAM (CLOBAZAM) [Concomitant]
  5. VALPROATE SODIUM [Concomitant]
  6. LANSOPRAZOLE [Concomitant]
  7. RISPERDIONE (RISPERIDONE) [Concomitant]
  8. TEGRETOL [Concomitant]

REACTIONS (4)
  - COAGULOPATHY [None]
  - DRUG ADMINISTRATION ERROR [None]
  - DRUG INTERACTION [None]
  - INTERNATIONAL NORMALISED RATIO INCREASED [None]
